FAERS Safety Report 22087264 (Version 1)
Quarter: 2023Q1

REPORT INFORMATION
  Report Type: Spontaneous
  Country: US (occurrence: US)
  Receive Date: 20230313
  Receipt Date: 20230313
  Transmission Date: 20230417
  Serious: No
  Sender: FDA-Public Use
  Company Number: US-drreddys-SPO/USA/23/0160190

PATIENT
  Age: 26 Year
  Sex: Female

DRUGS (3)
  1. ZENATANE [Suspect]
     Active Substance: ISOTRETINOIN
     Indication: Product used for unknown indication
     Dosage: RMA ISSUE DATE: 10 JANUARY 2022 04:36:20 PM, 17 MARCH 2022 12:45:34 PM, 19 APRIL 2022 04:00:06 PM, 2
  2. ZENATANE [Suspect]
     Active Substance: ISOTRETINOIN
     Dosage: RMA ISSUE DATE: 10 OCTOBER 2022 12:13:10 PM, 22 NOVEMBER 2022 01:33:38 PM
  3. ZENATANE [Suspect]
     Active Substance: ISOTRETINOIN
     Dosage: RMA ISSUE DATE: 22 FEBRUARY 2022 10:37:28 AM

REACTIONS (1)
  - Treatment noncompliance [Unknown]
